FAERS Safety Report 17371161 (Version 3)
Quarter: 2020Q3

REPORT INFORMATION
  Report Type: Spontaneous
  Country: US (occurrence: US)
  Receive Date: 20200205
  Receipt Date: 20200820
  Transmission Date: 20201102
  Serious: No
  Sender: FDA-Public Use
  Company Number: US-COHERUS BIOSCIENCES, INC-2020US000661

PATIENT

DRUGS (14)
  1. UDENYCA [Suspect]
     Active Substance: PEGFILGRASTIM-CBQV
     Indication: LEUKOPENIA
     Dosage: 6 MG
     Route: 058
     Dates: start: 201909
  2. METOPROLOL. [Concomitant]
     Active Substance: METOPROLOL
  3. OXALIPLATIN. [Concomitant]
     Active Substance: OXALIPLATIN
     Dosage: UNK, Q2WEEKS
  4. IRON [Concomitant]
     Active Substance: IRON
  5. LEUCOVORIN CA [Concomitant]
     Active Substance: LEUCOVORIN CALCIUM
     Dosage: UNK UNK, Q2WEEKS
  6. FAMOTIDINE. [Concomitant]
     Active Substance: FAMOTIDINE
  7. TRIAMTERENE. [Concomitant]
     Active Substance: TRIAMTERENE
  8. VITAMIN B12 [Concomitant]
     Active Substance: CYANOCOBALAMIN
  9. FLUOROURACIL 5 FU [Concomitant]
     Active Substance: FLUOROURACIL
     Dosage: UNK UNK, Q2WEEKS
  10. IRINOTECAN [Concomitant]
     Active Substance: IRINOTECAN
     Dosage: UNK UNK, Q2WEEKS
  11. WARFARIN [Concomitant]
     Active Substance: WARFARIN
  12. ATORVASTATIN [Concomitant]
     Active Substance: ATORVASTATIN
     Dosage: UNK
  13. CLARITIN ALLERGIC [Concomitant]
     Active Substance: OXYMETAZOLINE HYDROCHLORIDE
  14. UDENYCA [Suspect]
     Active Substance: PEGFILGRASTIM-CBQV
     Dosage: UNK

REACTIONS (7)
  - Platelet count decreased [Recovered/Resolved]
  - Product confusion [Recovered/Resolved]
  - Dysphonia [Recovered/Resolved]
  - Dyspnoea [Recovered/Resolved]
  - Muscular weakness [Recovered/Resolved]
  - Tremor [Recovered/Resolved]
  - Loss of consciousness [Recovered/Resolved]

NARRATIVE: CASE EVENT DATE: 20200123
